FAERS Safety Report 9139595 (Version 1)
Quarter: 2013Q1

REPORT INFORMATION
  Report Type: Spontaneous
  Country: US (occurrence: US)
  Receive Date: 20130305
  Receipt Date: 20130305
  Transmission Date: 20140127
  Serious: No
  Sender: FDA-Public Use
  Company Number: US-PFIZER INC-2013074768

PATIENT
  Age: 79 Year
  Sex: Male

DRUGS (1)
  1. CARDURA [Suspect]
     Dosage: UNK
     Route: 048

REACTIONS (2)
  - Asthenia [Unknown]
  - Drug hypersensitivity [Unknown]
